FAERS Safety Report 10580763 (Version 1)
Quarter: 2014Q4

REPORT INFORMATION
  Report Type: Spontaneous
  Country: ES (occurrence: None)
  Receive Date: 20141110
  Receipt Date: 20141110
  Transmission Date: 20150529
  Serious: Yes (Hospitalization)
  Sender: FDA-Public Use
  Company Number: 2014SUP00081

PATIENT
  Age: 11 Year
  Sex: Female

DRUGS (1)
  1. TOPIRAMATE. [Suspect]
     Active Substance: TOPIRAMATE
     Indication: MIGRAINE PROPHYLAXIS

REACTIONS (13)
  - Hypertransaminasaemia [None]
  - Hypotonia [None]
  - Blood creatine phosphokinase increased [None]
  - Loss of consciousness [None]
  - Muscular weakness [None]
  - Coordination abnormal [None]
  - Stupor [None]
  - Prerenal failure [None]
  - Heat stroke [None]
  - Bradyphrenia [None]
  - Cardiac output decreased [None]
  - Troponin increased [None]
  - Hyperthermia [None]
